FAERS Safety Report 14386338 (Version 1)
Quarter: 2018Q1

REPORT INFORMATION
  Report Type: Spontaneous
  Country: US (occurrence: US)
  Receive Date: 20180115
  Receipt Date: 20180115
  Transmission Date: 20180509
  Serious: Yes (Other)
  Sender: FDA-Public Use
  Company Number: US-SA-2017SA137618

PATIENT
  Age: 62 Year
  Sex: Female
  Weight: 53.52 kg

DRUGS (3)
  1. TAXOTERE [Suspect]
     Active Substance: DOCETAXEL
     Indication: BREAST CANCER
     Route: 051
     Dates: start: 20070221, end: 20070221
  2. TAXOTERE [Suspect]
     Active Substance: DOCETAXEL
     Indication: BREAST CANCER
     Route: 051
     Dates: start: 20070630, end: 20070630
  3. ARMOUR THYROID [Concomitant]
     Active Substance: THYROID, PORCINE
     Route: 065
     Dates: start: 1961

REACTIONS (1)
  - Alopecia [Not Recovered/Not Resolved]

NARRATIVE: CASE EVENT DATE: 200801
